FAERS Safety Report 8941628 (Version 2)
Quarter: 2012Q4

REPORT INFORMATION
  Report Type: 
  Country: US (occurrence: US)
  Receive Date: 20121203
  Receipt Date: 20121218
  Transmission Date: 20130627
  Serious: Yes (Hospitalization)
  Sender: FDA-Public Use
  Company Number: US-PFIZER INC-2012301819

PATIENT
  Age: 65 Year
  Sex: Female
  Weight: 85.26 kg

DRUGS (5)
  1. NORVASC [Suspect]
     Dosage: UNK
     Dates: end: 201211
  2. LIPITOR [Suspect]
     Indication: HIGH CHOLESTEROL
     Dosage: 40 mg, daily
  3. LIPITOR [Suspect]
     Indication: TRIGLYCERIDES HIGH
  4. NEURONTIN [Suspect]
     Dosage: UNK
  5. ZOLOFT [Suspect]
     Dosage: UNK

REACTIONS (4)
  - Cardiac failure congestive [Unknown]
  - Arterial occlusive disease [Unknown]
  - Heart rate irregular [Unknown]
  - Throat irritation [Unknown]
